FAERS Safety Report 7297430-X (Version None)
Quarter: 2011Q1

REPORT INFORMATION
  Report Type: 
  Country: None (occurrence: None)
  Receive Date: 20110207
  Receipt Date: 20110125
  Transmission Date: 20110831
  Serious: Yes (Other)
  Sender: FDA-Public Use
  Company Number: 1000018290

PATIENT
  Age: 80 Year
  Sex: Female

DRUGS (10)
  1. CITALOPRAM [Concomitant]
  2. TORENDO Q (RISPERIDONE) [Concomitant]
  3. PERINDOPRIL ERBUMINE [Concomitant]
  4. ASPIRIN [Concomitant]
  5. FUROSEMIDE [Concomitant]
  6. DICLOFENAC [Concomitant]
  7. MEMANTINE [Suspect]
     Indication: DEMENTIA ALZHEIMER'S TYPE
     Dosage: SEE IMAGE: ORAL
     Route: 048
     Dates: start: 20101223, end: 20101229
  8. MEMANTINE [Suspect]
     Indication: DEMENTIA ALZHEIMER'S TYPE
     Dosage: SEE IMAGE: ORAL
     Route: 048
     Dates: start: 20101230, end: 20110105
  9. MEMANTINE [Suspect]
     Indication: DEMENTIA ALZHEIMER'S TYPE
     Dosage: SEE IMAGE: ORAL
     Route: 048
     Dates: start: 20110113
  10. MEMANTINE [Suspect]
     Indication: DEMENTIA ALZHEIMER'S TYPE
     Dosage: SEE IMAGE: ORAL
     Route: 048
     Dates: start: 20110106, end: 20110112

REACTIONS (5)
  - VERTIGO [None]
  - SKIN DISCOLOURATION [None]
  - HEART RATE DECREASED [None]
  - ASTHENIA [None]
  - OXYGEN SATURATION DECREASED [None]
